FAERS Safety Report 8008193-4 (Version None)
Quarter: 2011Q4

REPORT INFORMATION
  Report Type: 
  Country: None (occurrence: None)
  Receive Date: 20111222
  Receipt Date: 20111222
  Transmission Date: 20120403
  Serious: Yes (Other)
  Sender: FDA-Public Use
  Company Number: None

PATIENT
  Sex: Female
  Weight: 72.5755 kg

DRUGS (2)
  1. NIFEDIPINE [Suspect]
     Indication: HYPERTENSION
     Dosage: ONE TABLET ONCE DAILY
     Dates: end: 20111107
  2. NIFEDIPINE [Suspect]
     Indication: CARDIAC DISORDER
     Dosage: ONE TABLET ONCE DAILY
     Dates: end: 20111107

REACTIONS (4)
  - NAUSEA [None]
  - BLOOD PRESSURE INCREASED [None]
  - PRODUCT SIZE ISSUE [None]
  - NERVOUSNESS [None]
